FAERS Safety Report 8017073-X (Version None)
Quarter: 2012Q1

REPORT INFORMATION
  Report Type: 
  Country: None (occurrence: None)
  Receive Date: 20120102
  Receipt Date: 20111230
  Transmission Date: 20120608
  Serious: Yes (Death, Other)
  Sender: FDA-Public Use
  Company Number: PHHY2011NL113458

PATIENT
  Sex: Male

DRUGS (3)
  1. ZOMETA [Suspect]
     Dosage: 4 MG/ 5 ML, 1 X PER 12 WEEKS
     Route: 042
     Dates: start: 20100317
  2. ZOMETA [Suspect]
     Dosage: 4 MG/ 5 ML, 1 X PER 12 WEEKS
     Route: 042
     Dates: start: 20110726
  3. ZOMETA [Suspect]
     Dosage: 4 MG/ 5 ML, 1 X PER 12 WEEKS
     Route: 042
     Dates: start: 20111018

REACTIONS (2)
  - GENERAL PHYSICAL HEALTH DETERIORATION [None]
  - PNEUMONIA [None]
